FAERS Safety Report 6345620-2 (Version None)
Quarter: 2009Q3

REPORT INFORMATION
  Report Type: 
  Country: None (occurrence: None)
  Receive Date: 20090909
  Receipt Date: 20090831
  Transmission Date: 20100115
  Serious: Yes (Death)
  Sender: FDA-Public Use
  Company Number: US-CUBIST-2009S1000360

PATIENT
  Age: 55 Year
  Sex: Male
  Weight: 158 kg

DRUGS (10)
  1. CUBICIN [Suspect]
     Indication: CELLULITIS
     Route: 042
     Dates: start: 20090717, end: 20090728
  2. CUBICIN [Suspect]
     Route: 042
     Dates: start: 20090717, end: 20090728
  3. HYDROCHLOROTHIAZIDE [Concomitant]
  4. LISINOPRIL [Concomitant]
  5. METFORMIN HCL [Concomitant]
     Indication: DIABETES MELLITUS
  6. METOLAZONE [Concomitant]
  7. OMEPRAZOLE [Concomitant]
  8. VANCOMYCIN [Concomitant]
     Indication: CELLULITIS
     Dates: start: 20090711, end: 20090716
  9. VANCOMYCIN [Concomitant]
     Dates: start: 20090715, end: 20090716
  10. VANCOMYCIN [Concomitant]
     Dates: start: 20090717, end: 20090717

REACTIONS (4)
  - ACUTE HEPATIC FAILURE [None]
  - BLOOD CREATINE PHOSPHOKINASE INCREASED [None]
  - HEPATORENAL SYNDROME [None]
  - METABOLIC ACIDOSIS [None]
